FAERS Safety Report 13709304 (Version 2)
Quarter: 2017Q3

REPORT INFORMATION
  Report Type: Spontaneous
  Country: IT (occurrence: IT)
  Receive Date: 20170703
  Receipt Date: 20170811
  Transmission Date: 20171127
  Serious: Yes (Other)
  Sender: FDA-Public Use
  Company Number: PHHY2017IT092118

PATIENT
  Age: 55 Year
  Sex: Female
  Weight: 100 kg

DRUGS (3)
  1. ZARZIO [Suspect]
     Active Substance: FILGRASTIM
     Indication: COLONY STIMULATING FACTOR PROPHYLAXIS
     Dosage: 30 UL, QD
     Route: 058
     Dates: start: 20170602
  2. IFOSFAMIDE. [Concomitant]
     Active Substance: IFOSFAMIDE
     Indication: SARCOMA
     Dosage: 300 MG/M2, UNK
     Route: 042
     Dates: start: 20170529, end: 20170530
  3. EPIRUBICIN [Concomitant]
     Active Substance: EPIRUBICIN
     Indication: SARCOMA
     Dosage: 70 MG, UNK
     Route: 042
     Dates: start: 20170529, end: 20170531

REACTIONS (2)
  - Neutropenia [Recovered/Resolved]
  - Drug ineffective [Recovered/Resolved]

NARRATIVE: CASE EVENT DATE: 20170608
